FAERS Safety Report 7052454-2 (Version None)
Quarter: 2010Q4

REPORT INFORMATION
  Report Type: 
  Country: None (occurrence: None)
  Receive Date: 20101019
  Receipt Date: 20101006
  Transmission Date: 20110411
  Serious: Yes (Hospitalization)
  Sender: FDA-Public Use
  Company Number: CH-ELI_LILLY_AND_COMPANY-CH201010000562

PATIENT
  Sex: Female

DRUGS (8)
  1. CYMBALTA [Suspect]
     Indication: DEPRESSION
     Dosage: UNK UNK, DAILY (1/D)
     Route: 048
     Dates: end: 20100903
  2. CYMBALTA [Suspect]
     Dates: start: 20100901
  3. DEPAKENE [Concomitant]
     Dosage: UNK UNK, DAILY (1/D)
     Route: 048
     Dates: start: 20100801, end: 20100903
  4. TRYPTIZOL [Concomitant]
     Indication: DEPRESSION
     Dosage: UNK UNK,
     Route: 048
     Dates: end: 20100903
  5. TRYPTIZOL [Concomitant]
     Dates: start: 20100901
  6. COTENOLOL [Concomitant]
     Dosage: UNK UNK, DAILY (1/D)
     Route: 048
     Dates: end: 20100903
  7. TOPAMAX [Concomitant]
     Dosage: UNK UNK,
     Route: 048
     Dates: start: 20100801, end: 20100903
  8. ZOLPIDEM [Concomitant]
     Indication: DEPRESSION
     Dosage: UNK, UNK
     Route: 048

REACTIONS (2)
  - HYPOKALAEMIA [None]
  - INAPPROPRIATE ANTIDIURETIC HORMONE SECRETION [None]
